FAERS Safety Report 6387846-8 (Version None)
Quarter: 2009Q3

REPORT INFORMATION
  Report Type: 
  Country: None (occurrence: None)
  Receive Date: 20090930
  Receipt Date: 20090914
  Transmission Date: 20100115
  Serious: Yes (Hospitalization)
  Sender: FDA-Public Use
  Company Number: 2009AL002836

PATIENT
  Age: 46 Year
  Sex: Male

DRUGS (36)
  1. DIGOXIN [Suspect]
     Dosage: 0.25MG, DAILY, PO
     Route: 048
     Dates: start: 20051209
  2. DEMADEX [Concomitant]
  3. MAGNESIUM OXIDE [Concomitant]
  4. ALLOPURINOL [Concomitant]
  5. SYNTHROID [Concomitant]
  6. BYETTA [Concomitant]
  7. AMIODARONE [Concomitant]
  8. SPIRONOLACTONE [Concomitant]
  9. XENICAL [Concomitant]
  10. AMBIEN [Concomitant]
  11. SINGULAIR [Concomitant]
  12. LISINOPRIL [Concomitant]
  13. COREG [Concomitant]
  14. THYROLAR [Concomitant]
  15. ORLISTAT [Concomitant]
  16. TORSEMIDE [Concomitant]
  17. LUNESTA [Concomitant]
  18. XOPENEX [Concomitant]
  19. ADVAIR DISKUS 100/50 [Concomitant]
  20. WARFARIN SODIUM [Concomitant]
  21. ZYRTEC [Concomitant]
  22. FUROSEMIDE [Concomitant]
  23. LEVAQUIN [Concomitant]
  24. HYDROCODONE [Concomitant]
  25. LEVOTHYROXINE SODIUM [Concomitant]
  26. METOLAZONE [Concomitant]
  27. POTASSIUM CHLORIDE [Concomitant]
  28. VIAGRA [Concomitant]
  29. NASONEX [Concomitant]
  30. POTASSIUM CHLORIDE [Concomitant]
  31. TIKOSYN [Concomitant]
  32. COREG [Concomitant]
  33. LASIX [Concomitant]
  34. KLOR-CON [Concomitant]
  35. PACERONE [Concomitant]
  36. SIMETHICONE [Concomitant]

REACTIONS (38)
  - AORTIC VALVE CALCIFICATION [None]
  - ATRIAL FIBRILLATION [None]
  - ATRIOVENTRICULAR BLOCK FIRST DEGREE [None]
  - BLOOD CHLORIDE DECREASED [None]
  - BLOOD GLUCOSE INCREASED [None]
  - BLOOD POTASSIUM DECREASED [None]
  - BLOOD POTASSIUM INCREASED [None]
  - CARDIAC FAILURE [None]
  - CARDIOMYOPATHY [None]
  - CHOLECYSTITIS ACUTE [None]
  - CHOLELITHIASIS [None]
  - DIARRHOEA [None]
  - DILATATION VENTRICULAR [None]
  - ECONOMIC PROBLEM [None]
  - ERECTILE DYSFUNCTION [None]
  - EXERCISE TOLERANCE DECREASED [None]
  - FALL [None]
  - HEPATOJUGULAR REFLUX [None]
  - HYPOTENSION [None]
  - JUGULAR VEIN DISTENSION [None]
  - LEUKOCYTOSIS [None]
  - LOSS OF CONSCIOUSNESS [None]
  - MITRAL VALVE INCOMPETENCE [None]
  - MULTIPLE INJURIES [None]
  - NASAL CONGESTION [None]
  - OROPHARYNGEAL PAIN [None]
  - PULMONARY CONGESTION [None]
  - RENAL FAILURE ACUTE [None]
  - RESPIRATORY TRACT INFECTION [None]
  - RHINITIS ALLERGIC [None]
  - RIGHT ATRIAL DILATATION [None]
  - SLEEP APNOEA SYNDROME [None]
  - SUPRAVENTRICULAR EXTRASYSTOLES [None]
  - SURGERY [None]
  - UNEVALUABLE EVENT [None]
  - UPPER RESPIRATORY TRACT INFECTION [None]
  - VENTRICULAR EXTRASYSTOLES [None]
  - WEIGHT INCREASED [None]
